FAERS Safety Report 15722794 (Version 2)
Quarter: 2019Q1

REPORT INFORMATION
  Report Type: Spontaneous
  Country: US (occurrence: US)
  Receive Date: 20181214
  Receipt Date: 20190215
  Transmission Date: 20190417
  Serious: Yes (Hospitalization)
  Sender: FDA-Public Use
  Company Number: US-BIOGEN-2018BI00669372

PATIENT
  Age: 19 Day
  Sex: Male

DRUGS (1)
  1. SPINRAZA [Suspect]
     Active Substance: NUSINERSEN
     Indication: SPINAL MUSCULAR ATROPHY
     Route: 065
     Dates: start: 20181024, end: 20181126

REACTIONS (7)
  - Pneumonia [Recovered/Resolved]
  - Lung infiltration [Recovered/Resolved]
  - Bradycardia [Recovered/Resolved]
  - Proteinuria [Recovered/Resolved]
  - Pulmonary congestion [Recovered/Resolved]
  - Mechanical ventilation [Recovered/Resolved]
  - Muscular weakness [Unknown]

NARRATIVE: CASE EVENT DATE: 20181026
